FAERS Safety Report 10531342 (Version 1)
Quarter: 2014Q4

REPORT INFORMATION
  Report Type: Report from Study
  Country: KR (occurrence: KR)
  Receive Date: 20141021
  Receipt Date: 20141021
  Transmission Date: 20150529
  Serious: No
  Sender: FDA-Public Use
  Company Number: PHHY2014KR136422

PATIENT
  Age: 69 Year
  Sex: Female

DRUGS (6)
  1. HERBEN [Concomitant]
     Indication: ANGINA PECTORIS
     Dosage: 60 MG, UNK
     Route: 048
     Dates: start: 20120711
  2. ANPLAG [Concomitant]
     Active Substance: SARPOGRELATE
     Indication: ANGINA PECTORIS
     Dosage: 100 MG, UNK
     Route: 048
     Dates: start: 20130104
  3. FOLIC ACID. [Concomitant]
     Active Substance: FOLIC ACID
     Indication: LEUKAEMIA
     Dosage: 2 DF, UNK
     Route: 048
     Dates: start: 20140124
  4. AMN107 [Suspect]
     Active Substance: NILOTINIB
     Indication: CHRONIC MYELOID LEUKAEMIA
     Dosage: 400 MG, QD
     Route: 048
     Dates: start: 20140124
  5. ATORVA [Concomitant]
     Indication: ANGINA PECTORIS
     Dosage: 10 MG, UNK
     Route: 048
     Dates: start: 20130822
  6. VASTINAN [Concomitant]
     Indication: ANGINA PECTORIS
     Dosage: 70 MG, UNK
     Route: 048
     Dates: start: 20140109

REACTIONS (1)
  - Upper respiratory tract infection [Recovered/Resolved]

NARRATIVE: CASE EVENT DATE: 20140124
